FAERS Safety Report 19933276 (Version 1)
Quarter: 2021Q4

REPORT INFORMATION
  Report Type: Spontaneous
  Country: AT (occurrence: AT)
  Receive Date: 20211008
  Receipt Date: 20211008
  Transmission Date: 20220303
  Serious: Yes (Other)
  Sender: FDA-Public Use
  Company Number: AT-AMGEN-AUTSP2021153434

PATIENT
  Age: 80 Year
  Sex: Female

DRUGS (2)
  1. PROLIA [Suspect]
     Active Substance: DENOSUMAB
     Indication: Osteoporosis
     Dosage: UNK
     Route: 065
     Dates: start: 2017
  2. PARATHYROID HORMONE [Concomitant]
     Active Substance: PARATHYROID HORMONE
     Indication: Osteoporosis

REACTIONS (3)
  - Leukopenia [Unknown]
  - Agranulocytosis [Recovered/Resolved]
  - Viral infection [Unknown]
